FAERS Safety Report 8303011-9 (Version None)
Quarter: 2012Q2

REPORT INFORMATION
  Report Type: 
  Country: None (occurrence: None)
  Receive Date: 20120421
  Receipt Date: 20060309
  Transmission Date: 20120825
  Serious: Yes (Life-Threatening, Hospitalization)
  Sender: FDA-Public Use
  Company Number: PHHY2006SG009434

PATIENT
  Sex: Male

DRUGS (2)
  1. GLEEVEC [Suspect]
     Indication: CHRONIC MYELOID LEUKAEMIA
     Dosage: 300 MG, QD
     Route: 048
     Dates: start: 20050124
  2. GLEEVEC [Suspect]
     Dosage: 400 MG,QD
     Route: 048
     Dates: start: 20060101

REACTIONS (9)
  - SUICIDAL IDEATION [None]
  - MUSCULAR WEAKNESS [None]
  - DECREASED APPETITE [None]
  - HAEMOPTYSIS [None]
  - FALL [None]
  - DIARRHOEA [None]
  - OEDEMA PERIPHERAL [None]
  - CHEST PAIN [None]
  - PULMONARY THROMBOSIS [None]
